FAERS Safety Report 4740838-4 (Version None)
Quarter: 2005Q3

REPORT INFORMATION
  Report Type: 
  Country: None (occurrence: None)
  Receive Date: 20050810
  Receipt Date: 20041004
  Transmission Date: 20060218
  Serious: No
  Sender: FDA-Public Use
  Company Number: US-GLAXOSMITHKLINE-A0528359A

PATIENT
  Age: 6 Month
  Sex: Male

DRUGS (3)
  1. TAGAMET HB 200 [Suspect]
     Dates: start: 20031001, end: 20040301
  2. VITAMIN AND MINERAL PRENATAL SUPPLEMENT W/ FOLIC ACID CAP [Concomitant]
  3. CALCIUM GLUCONATE [Concomitant]

REACTIONS (2)
  - DRUG EXPOSURE DURING PREGNANCY [None]
  - TESTICULAR DISORDER [None]
